FAERS Safety Report 22381690 (Version 1)
Quarter: 2023Q2

REPORT INFORMATION
  Report Type: Report from Study
  Country: IT (occurrence: IT)
  Receive Date: 20230530
  Receipt Date: 20230530
  Transmission Date: 20230722
  Serious: Yes (Hospitalization)
  Sender: FDA-Public Use
  Company Number: IT-ORPHANEU-2023003177

PATIENT

DRUGS (4)
  1. CARBAGLU [Suspect]
     Active Substance: CARGLUMIC ACID
     Indication: Propionic acidaemia
     Dosage: 50 MG/KG/DAY, TID
     Dates: start: 20170428
  2. CARBAGLU [Suspect]
     Active Substance: CARGLUMIC ACID
     Dosage: 30 MG/KG/DAY, TID
     Dates: start: 20230115
  3. CARNITINE [Concomitant]
     Active Substance: CARNITINE
     Indication: Propionic acidaemia
     Dosage: 12 GRAM DAILY
     Route: 048
     Dates: start: 200408
  4. BIOTIN [Concomitant]
     Active Substance: BIOTIN
     Indication: Propionic acidaemia
     Dosage: 20 MG DAILY
     Route: 048
     Dates: start: 200408

REACTIONS (1)
  - Transient ischaemic attack [Recovered/Resolved]

NARRATIVE: CASE EVENT DATE: 20230116
